FAERS Safety Report 5426432-0 (Version None)
Quarter: 2007Q3

REPORT INFORMATION
  Report Type: 
  Country: None (occurrence: None)
  Receive Date: 20070731
  Receipt Date: 20070419
  Transmission Date: 20080115
  Serious: No
  Sender: FDA-Public Use
  Company Number: US200704004553

PATIENT
  Age: 82 Year
  Sex: Female

DRUGS (2)
  1. BYETTA [Suspect]
     Indication: TYPE 2 DIABETES MELLITUS
     Dosage: 5 UG, 2/D; 10 UG, 2/D; 10 UG DAILY (1/D), SUBCUTANEOUS
     Route: 058
     Dates: start: 20070418
  2. EXENATIDE(EXENATIDE PEN) [Concomitant]

REACTIONS (5)
  - ABDOMINAL PAIN UPPER [None]
  - ANOSMIA [None]
  - DIARRHOEA [None]
  - DYSGEUSIA [None]
  - FLATULENCE [None]
